FAERS Safety Report 24356194 (Version 2)
Quarter: 2024Q4

REPORT INFORMATION
  Report Type: Spontaneous
  Country: JP (occurrence: JP)
  Receive Date: 20240924
  Receipt Date: 20241213
  Transmission Date: 20250114
  Serious: Yes (Other)
  Sender: GILEAD
  Company Number: JP-GILEAD-2024-0688343

PATIENT
  Age: 64 Year
  Sex: Male

DRUGS (3)
  1. VEMLIDY [Suspect]
     Active Substance: TENOFOVIR ALAFENAMIDE FUMARATE
     Indication: Chronic hepatitis B
     Dosage: 25 MG
     Route: 048
     Dates: start: 202205
  2. HEPSERA [Suspect]
     Active Substance: ADEFOVIR DIPIVOXIL
     Indication: Chronic hepatitis B
     Dosage: UNK
     Route: 065
     Dates: start: 2007, end: 202205
  3. LAMIVUDINE [Concomitant]
     Active Substance: LAMIVUDINE
     Indication: Chronic hepatitis B
     Dosage: UNK
     Route: 048

REACTIONS (4)
  - Spinal ligament ossification [Recovered/Resolved]
  - Fanconi syndrome acquired [Recovered/Resolved]
  - Muscular weakness [Recovered/Resolved]
  - Hypophosphataemia [Not Recovered/Not Resolved]

NARRATIVE: CASE EVENT DATE: 20230101
